FAERS Safety Report 21566188 (Version 1)
Quarter: 2022Q4

REPORT INFORMATION
  Report Type: Spontaneous
  Country: US (occurrence: US)
  Receive Date: 20221108
  Receipt Date: 20221108
  Transmission Date: 20230113
  Serious: No
  Sender: FDA-Public Use
  Company Number: US-NOVOPROD-951140

PATIENT
  Age: 47 Year
  Sex: Female

DRUGS (1)
  1. FIASP [Suspect]
     Active Substance: INSULIN ASPART
     Indication: Type 1 diabetes mellitus
     Dosage: AS NEEDED

REACTIONS (3)
  - Inflammation [Recovered/Resolved]
  - Myalgia [Recovered/Resolved]
  - Dyspepsia [Recovered/Resolved]
